FAERS Safety Report 22239339 (Version 1)
Quarter: 2023Q2

REPORT INFORMATION
  Report Type: Spontaneous
  Country: US (occurrence: US)
  Receive Date: 20230421
  Receipt Date: 20230421
  Transmission Date: 20230722
  Serious: No
  Sender: FDA-Public Use
  Company Number: US-009507513-2304USA000032

PATIENT
  Sex: Male

DRUGS (1)
  1. ZERBAXA [Suspect]
     Active Substance: CEFTOLOZANE SULFATE\TAZOBACTAM SODIUM
     Dosage: STRENGTH: CEFTOLOZANE SULFATE 1G (+) TAZOBACTAM SODIUM 0.5 G; FREQUENCY: EVERY 8 HOURS (Q8H)
     Route: 042

REACTIONS (1)
  - Arthralgia [Unknown]
